FAERS Safety Report 14306675 (Version 3)
Quarter: 2019Q3

REPORT INFORMATION
  Report Type: Spontaneous
  Country: US (occurrence: US)
  Receive Date: 20171220
  Receipt Date: 20190708
  Transmission Date: 20191004
  Serious: Yes (Death, Hospitalization, Other)
  Sender: FDA-Public Use
  Company Number: US-ASTRAZENECA-2017SF28713

PATIENT
  Age: 906 Month
  Sex: Male

DRUGS (14)
  1. KOMBIGLYZE XR [Suspect]
     Active Substance: METFORMIN HYDROCHLORIDE\SAXAGLIPTIN HYDROCHLORIDE
     Indication: TYPE 2 DIABETES MELLITUS
     Route: 048
     Dates: start: 20140205, end: 20170217
  2. LIDOCAINE. [Concomitant]
     Active Substance: LIDOCAINE
  3. BENADRYL [Concomitant]
     Active Substance: DIPHENHYDRAMINE HYDROCHLORIDE
  4. LEVEMIR [Concomitant]
     Active Substance: INSULIN DETEMIR
  5. ONGLYZA [Suspect]
     Active Substance: SAXAGLIPTIN HYDROCHLORIDE
     Indication: TYPE 2 DIABETES MELLITUS
     Route: 048
     Dates: start: 20140205, end: 20170217
  6. ASPIRIN. [Concomitant]
     Active Substance: ASPIRIN
  7. KOMBIGLYZE XR [Suspect]
     Active Substance: METFORMIN HYDROCHLORIDE\SAXAGLIPTIN HYDROCHLORIDE
     Indication: TYPE 2 DIABETES MELLITUS
     Dosage: 2.5-1.000 MG
     Route: 048
     Dates: start: 2014, end: 2017
  8. FENTANYL. [Concomitant]
     Active Substance: FENTANYL
  9. LOPRESSOR [Concomitant]
     Active Substance: METOPROLOL TARTRATE
  10. LIPITOR [Concomitant]
     Active Substance: ATORVASTATIN CALCIUM
  11. COREG [Concomitant]
     Active Substance: CARVEDILOL
  12. MIDAZOLAM [Concomitant]
     Active Substance: MIDAZOLAM HYDROCHLORIDE
  13. XARELTO [Concomitant]
     Active Substance: RIVAROXABAN
  14. ZOCOR [Concomitant]
     Active Substance: SIMVASTATIN

REACTIONS (10)
  - Cardiac failure acute [Fatal]
  - Acute left ventricular failure [Fatal]
  - Chronic left ventricular failure [Unknown]
  - Acute kidney injury [Unknown]
  - Cardiogenic shock [Fatal]
  - Ischaemic cardiomyopathy [Fatal]
  - Cardiac failure [Unknown]
  - Chronic kidney disease [Unknown]
  - Cardiac failure congestive [Unknown]
  - Hypertensive heart disease [Unknown]

NARRATIVE: CASE EVENT DATE: 201508
